FAERS Safety Report 11987711 (Version 1)
Quarter: 2016Q1

REPORT INFORMATION
  Report Type: Report from Study
  Country: TR (occurrence: TR)
  Receive Date: 20160202
  Receipt Date: 20160202
  Transmission Date: 20160526
  Serious: Yes (Other)
  Sender: FDA-Public Use
  Company Number: TR-ACCORD-037443

PATIENT
  Age: 16 Year
  Sex: Male

DRUGS (12)
  1. FLUDARABINE [Concomitant]
     Active Substance: FLUDARABINE PHOSPHATE
  2. BUSULFAN [Concomitant]
     Active Substance: BUSULFAN
  3. METHYLPREDNISOLONE. [Suspect]
     Active Substance: METHYLPREDNISOLONE
     Indication: PROPHYLAXIS AGAINST GRAFT VERSUS HOST DISEASE
     Dosage: FROM DAY 0 TO +30 AND THEN TAPERED OVER 2-3 MONTHS
     Route: 042
  4. ACICLOVIR [Concomitant]
     Active Substance: ACYCLOVIR
     Indication: PROPHYLAXIS
  5. ETOPOSIDE. [Concomitant]
     Active Substance: ETOPOSIDE
  6. CIPROFLOXACIN. [Concomitant]
     Active Substance: CIPROFLOXACIN
     Indication: PROPHYLAXIS
  7. FLUCONAZOLE. [Concomitant]
     Active Substance: FLUCONAZOLE
     Indication: PROPHYLAXIS
  8. CYCLOPHOSPHAMIDE/CYCLOPHOSPHAMIDE MONOHYDRATE [Suspect]
     Active Substance: CYCLOPHOSPHAMIDE
     Indication: PROPHYLAXIS AGAINST GRAFT VERSUS HOST DISEASE
     Dosage: GIVEN ON DAYS THREE AND?FIVE POST-HSCT
     Route: 042
  9. MESNA. [Concomitant]
     Active Substance: MESNA
     Dosage: ADMINISTERED FROM DAY THREE TO SEVEN POST-HSCT
  10. MYCOPHENOLIC ACID. [Suspect]
     Active Substance: MYCOPHENOLIC ACID
     Indication: PROPHYLAXIS AGAINST GRAFT VERSUS HOST DISEASE
     Route: 048
  11. TACROLIMUS. [Suspect]
     Active Substance: TACROLIMUS
     Indication: PROPHYLAXIS AGAINST GRAFT VERSUS HOST DISEASE
     Dosage: FROM DAY ONE
     Route: 042
  12. SULFAMETHOXAZOLE/TRIMETHOPRIM [Concomitant]
     Indication: PROPHYLAXIS

REACTIONS (3)
  - Cystitis haemorrhagic [Recovered/Resolved]
  - Hepatitis B [Unknown]
  - Acute graft versus host disease [Recovered/Resolved]
